FAERS Safety Report 4790323-9 (Version None)
Quarter: 2005Q4

REPORT INFORMATION
  Report Type: 
  Country: None (occurrence: None)
  Receive Date: 20051005
  Receipt Date: 20051005
  Transmission Date: 20060501
  Serious: Yes (Hospitalization)
  Sender: FDA-Public Use
  Company Number: None

PATIENT
  Sex: Female

DRUGS (8)
  1. WARFARIN [Suspect]
     Indication: DEEP VEIN THROMBOSIS
     Dosage: 1 MG PO QD  APPROXIMATELY 6 MONTH
     Route: 048
  2. FEXOFENADINE HCL [Concomitant]
  3. CEPHALEXIN [Concomitant]
  4. FUROSEMIDE [Concomitant]
  5. ZOLPIDEM TARTRATE [Concomitant]
  6. ESOMEPRAZOLE [Concomitant]
  7. PACLITAXEL [Concomitant]
  8. GEMCITABINE [Concomitant]

REACTIONS (5)
  - DIZZINESS [None]
  - HAEMOGLOBIN DECREASED [None]
  - INTERNATIONAL NORMALISED RATIO INCREASED [None]
  - RECTAL HAEMORRHAGE [None]
  - VISION BLURRED [None]
